FAERS Safety Report 11521923 (Version 1)
Quarter: 2015Q3

REPORT INFORMATION
  Report Type: Spontaneous
  Country: US (occurrence: US)
  Receive Date: 20150903
  Receipt Date: 20150903
  Transmission Date: 20151125
  Serious: No
  Sender: FDA-Public Use
  Company Number: US-ELI_LILLY_AND_COMPANY-US201210001325

PATIENT
  Age: 78 Year
  Sex: Female

DRUGS (5)
  1. PRAVASTATIN [Concomitant]
     Active Substance: PRAVASTATIN\PRAVASTATIN SODIUM
  2. CYMBALTA [Suspect]
     Active Substance: DULOXETINE HYDROCHLORIDE
     Indication: MUSCULOSKELETAL DISORDER
     Dosage: 30 MG, QD
     Dates: start: 20120908, end: 20120918
  3. ASPIRIN. [Concomitant]
     Active Substance: ASPIRIN
  4. CALCIUM [Concomitant]
     Active Substance: CALCIUM
  5. SYNTHROID [Concomitant]
     Active Substance: LEVOTHYROXINE SODIUM

REACTIONS (14)
  - Haemorrhage subcutaneous [Unknown]
  - Feeling abnormal [Unknown]
  - Diplopia [Recovered/Resolved]
  - Oedema peripheral [Unknown]
  - Ocular hyperaemia [Unknown]
  - Feeling jittery [Unknown]
  - Muscle spasms [Unknown]
  - Pigmentation disorder [Unknown]
  - Hyperhidrosis [Unknown]
  - Off label use [Unknown]
  - Tremor [Unknown]
  - Dry mouth [Unknown]
  - Nausea [Unknown]
  - Drug withdrawal syndrome [Unknown]
